FAERS Safety Report 16856261 (Version 1)
Quarter: 2019Q3

REPORT INFORMATION
  Report Type: Spontaneous
  Country: US (occurrence: US)
  Receive Date: 20190926
  Receipt Date: 20190926
  Transmission Date: 20191005
  Serious: Yes (Other)
  Sender: FDA-Public Use
  Company Number: US-SA-2019SA267471

PATIENT
  Sex: Female

DRUGS (1)
  1. FABRAZYME [Suspect]
     Active Substance: AGALSIDASE BETA
     Indication: FABRY^S DISEASE
     Route: 065

REACTIONS (6)
  - Immunodeficiency [Unknown]
  - Product contamination microbial [Unknown]
  - Folliculitis [Unknown]
  - Viral infection [Unknown]
  - Rash vesicular [Unknown]
  - Rash pruritic [Unknown]
